FAERS Safety Report 25942023 (Version 1)
Quarter: 2025Q4

REPORT INFORMATION
  Report Type: Spontaneous
  Country: EU (occurrence: EU)
  Receive Date: 20251020
  Receipt Date: 20251020
  Transmission Date: 20260118
  Serious: Yes (Other)
  Sender: BAYER HEALTHCARE PHARMACEUTICALS INC.
  Company Number: None

PATIENT
  Age: 44 Year
  Sex: Female

DRUGS (1)
  1. VITRAKVI [Suspect]
     Active Substance: LAROTRECTINIB
     Indication: Product used for unknown indication
     Dosage: 100 MG, BID/1 CAPSULE AT 9.30 A.M. + 1 CAPSULE  AT 9.30 P.M
     Route: 048
     Dates: start: 20250715

REACTIONS (3)
  - Hypertension [Recovering/Resolving]
  - Dry skin [Recovering/Resolving]
  - Photosensitivity reaction [Recovering/Resolving]

NARRATIVE: CASE EVENT DATE: 20250101
